FAERS Safety Report 8767100 (Version 1)
Quarter: 2012Q4

REPORT INFORMATION
  Report Type: Report from Study
  Country: GB (occurrence: GB)
  Receive Date: 20120831
  Receipt Date: 20120831
  Transmission Date: 20130627
  Serious: Yes (Hospitalization)
  Sender: FDA-Public Use
  Company Number: GB-ELI_LILLY_AND_COMPANY-GB201208007528

PATIENT
  Age: 62 Year
  Sex: Male
  Weight: 80.6 kg

DRUGS (9)
  1. PEMETREXED [Suspect]
     Indication: NON-SMALL CELL LUNG CANCER
     Dosage: 500 mg/m2, unknown
     Route: 042
     Dates: start: 20120629
  2. TAXOL [Suspect]
     Indication: NON-SMALL CELL LUNG CANCER
     Dosage: 175 mg/m2, unknown
     Route: 042
     Dates: start: 20120629
  3. DEXAMETHASONE [Concomitant]
     Dosage: 4 mg, bid
     Route: 048
     Dates: start: 20120811, end: 20120813
  4. ONDANSETRON [Concomitant]
     Dosage: 8 mg, bid
     Route: 048
     Dates: start: 20120811, end: 20120811
  5. METOCLOPRAMIDE [Concomitant]
     Indication: NAUSEA
     Dosage: 10 mg, prn
     Route: 048
     Dates: start: 20120811
  6. MACROGOL [Concomitant]
     Indication: CONSTIPATION
     Dosage: 1 DF, prn
     Route: 048
  7. SIMVASTATIN [Concomitant]
     Indication: BLOOD CHOLESTEROL
     Dosage: 40 mg, qd
     Route: 048
  8. BISOPROLOL [Concomitant]
     Indication: HYPERTENSION
     Dosage: 2.5 mg, each morning
     Route: 048
  9. FOLIC ACID [Concomitant]
     Dosage: 5 mg, each morning
     Route: 048
     Dates: start: 20120606

REACTIONS (2)
  - C-reactive protein increased [Recovered/Resolved with Sequelae]
  - Pyrexia [Recovered/Resolved]
